FAERS Safety Report 5035061-2 (Version None)
Quarter: 2006Q2

REPORT INFORMATION
  Report Type: 
  Country: None (occurrence: None)
  Receive Date: 20060622
  Receipt Date: 20060612
  Transmission Date: 20061013
  Serious: Yes (Other)
  Sender: FDA-Public Use
  Company Number: GBWYE723513JUN06

PATIENT
  Sex: Female

DRUGS (1)
  1. PREMARIN [Suspect]
     Dates: start: 19910101

REACTIONS (4)
  - ANXIETY [None]
  - DEPRESSION [None]
  - DRUG WITHDRAWAL SYNDROME [None]
  - PSYCHOTIC DISORDER [None]
